FAERS Safety Report 6500123-7 (Version None)
Quarter: 2009Q4

REPORT INFORMATION
  Report Type: 
  Country: None (occurrence: None)
  Receive Date: 20091216
  Receipt Date: 20090630
  Transmission Date: 20100525
  Serious: Yes (Life-Threatening, Hospitalization)
  Sender: FDA-Public Use
  Company Number: JP-SANOFI-AVENTIS-F01200800900

PATIENT
  Age: 84 Year
  Sex: Male
  Weight: 65 kg

DRUGS (6)
  1. CLOPIDOGREL BISULFATE [Suspect]
     Indication: LACUNAR INFARCTION
     Route: 048
     Dates: start: 20070511, end: 20080125
  2. URINORM [Concomitant]
     Route: 048
     Dates: start: 20070510, end: 20080125
  3. DIGOSIN [Concomitant]
     Route: 048
     Dates: start: 20070504, end: 20080125
  4. LASIX [Concomitant]
     Route: 048
     Dates: start: 20070504
  5. PIOGLITAZONE HYDROCHLORIDE [Concomitant]
     Indication: DIABETES MELLITUS
     Route: 048
     Dates: start: 20070907, end: 20080125
  6. CRESTOR [Concomitant]
     Route: 048
     Dates: start: 20071017, end: 20071114

REACTIONS (3)
  - JAUNDICE CHOLESTATIC [None]
  - LACUNAR INFARCTION [None]
  - PANCREATIC CARCINOMA [None]
